FAERS Safety Report 11165477 (Version 1)
Quarter: 2015Q2

REPORT INFORMATION
  Report Type: Spontaneous
  Country: US (occurrence: US)
  Receive Date: 20150604
  Receipt Date: 20150604
  Transmission Date: 20150821
  Serious: No
  Sender: FDA-Public Use
  Company Number: US-GLAXOSMITHKLINE-US2015GSK077089

PATIENT
  Age: 53 Year
  Sex: Male

DRUGS (1)
  1. TANZEUM [Suspect]
     Active Substance: ALBIGLUTIDE
     Indication: WEIGHT DECREASED
     Dosage: 30 MG, WE
     Route: 042
     Dates: start: 20150103

REACTIONS (2)
  - Device use error [Unknown]
  - Off label use [Unknown]

NARRATIVE: CASE EVENT DATE: 20150103
